FAERS Safety Report 5456840-3 (Version None)
Quarter: 2007Q3

REPORT INFORMATION
  Report Type: 
  Country: None (occurrence: None)
  Receive Date: 20070918
  Receipt Date: 20070330
  Transmission Date: 20080115
  Serious: Yes (Hospitalization)
  Sender: FDA-Public Use
  Company Number: US-ASTRAZENECA-2006UW26586

PATIENT
  Sex: Female
  Weight: 114.5 kg

DRUGS (6)
  1. SEROQUEL [Suspect]
     Indication: SLEEP APNOEA SYNDROME
     Route: 048
     Dates: end: 20030701
  2. ABILIFY [Concomitant]
  3. GEODON [Concomitant]
  4. RISPERDAL [Concomitant]
  5. TRILEPTAL [Concomitant]
  6. CLONOPIN [Concomitant]

REACTIONS (3)
  - DIABETES MELLITUS [None]
  - PANCREATITIS [None]
  - PNEUMONIA [None]
